FAERS Safety Report 15212034 (Version 3)
Quarter: 2019Q2

REPORT INFORMATION
  Report Type: Spontaneous
  Country: US (occurrence: US)
  Receive Date: 20180730
  Receipt Date: 20190509
  Transmission Date: 20190711
  Serious: No
  Sender: FDA-Public Use
  Company Number: US-ROCHE-2161512

PATIENT
  Sex: Male

DRUGS (10)
  1. PROPRANOLOL [Concomitant]
     Active Substance: PROPRANOLOL HYDROCHLORIDE
  2. ESBRIET [Suspect]
     Active Substance: PIRFENIDONE
     Dosage: ONGOING: UNKNOWN
     Route: 048
     Dates: start: 20180731
  3. BROVANA [Concomitant]
     Active Substance: ARFORMOTEROL TARTRATE
  4. BUDESONIDE. [Concomitant]
     Active Substance: BUDESONIDE
  5. OMEPRAZOLE. [Concomitant]
     Active Substance: OMEPRAZOLE
  6. ESBRIET [Suspect]
     Active Substance: PIRFENIDONE
     Indication: IDIOPATHIC PULMONARY FIBROSIS
     Route: 048
     Dates: start: 20180624
  7. ALBUTEROL [SALBUTAMOL] [Concomitant]
     Active Substance: ALBUTEROL
  8. FOLIC ACID. [Concomitant]
     Active Substance: FOLIC ACID
  9. PREDNISONE. [Concomitant]
     Active Substance: PREDNISONE
  10. PRIMIDONE. [Concomitant]
     Active Substance: PRIMIDONE

REACTIONS (2)
  - Vision blurred [Unknown]
  - Dyspnoea [Unknown]
